FAERS Safety Report 7129258-5 (Version None)
Quarter: 2010Q4

REPORT INFORMATION
  Report Type: 
  Country: None (occurrence: None)
  Receive Date: 20101130
  Receipt Date: 20101124
  Transmission Date: 20110411
  Serious: Yes (Hospitalization, Other)
  Sender: FDA-Public Use
  Company Number: US-PFIZER INC-2007050877

PATIENT
  Sex: Female
  Weight: 59 kg

DRUGS (9)
  1. CHANTIX [Suspect]
     Indication: SMOKING CESSATION THERAPY
     Dosage: UNK
     Dates: start: 20070518, end: 20070709
  2. CHANTIX [Suspect]
     Indication: TOBACCO ABUSE
  3. LEXAPRO [Concomitant]
     Dosage: UNK
     Route: 048
  4. KEFLEX [Concomitant]
     Dosage: 500 MG, 4X/DAY
     Route: 048
  5. PRILOSEC [Concomitant]
     Dosage: 20 MG, 1X/DAY
     Route: 048
  6. REGLAN [Concomitant]
     Dosage: 5 MG, 3X/DAY
     Route: 048
  7. DOXYCYCLINE [Concomitant]
     Dosage: 100 MG, 2X/DAY
     Route: 048
  8. OMEPRAZOLE [Concomitant]
     Dosage: 20 MG, UNK
  9. CEPHALEXIN [Concomitant]
     Dosage: 500 MG, UNK

REACTIONS (14)
  - ABDOMINAL PAIN [None]
  - ABNORMAL DREAMS [None]
  - ANXIETY [None]
  - CONFUSIONAL STATE [None]
  - DECREASED APPETITE [None]
  - DEPRESSION [None]
  - DIARRHOEA [None]
  - EMOTIONAL DISORDER [None]
  - FEELING ABNORMAL [None]
  - NAUSEA [None]
  - NERVOUSNESS [None]
  - SLEEP DISORDER [None]
  - SUICIDE ATTEMPT [None]
  - WITHDRAWAL SYNDROME [None]
